FAERS Safety Report 21062609 (Version 1)
Quarter: 2022Q3

REPORT INFORMATION
  Report Type: Report from Study
  Country: US (occurrence: US)
  Receive Date: 20220711
  Receipt Date: 20220711
  Transmission Date: 20221027
  Serious: No
  Sender: FDA-Public Use
  Company Number: US-NOVARTISTESTPH-NVSC2022US156674

PATIENT
  Sex: Male

DRUGS (1)
  1. COSENTYX [Suspect]
     Active Substance: SECUKINUMAB
     Indication: Psoriasis
     Dosage: 300 MG
     Route: 058

REACTIONS (6)
  - Burning sensation [Unknown]
  - Drug intolerance [Unknown]
  - Hypersensitivity [Unknown]
  - Treatment failure [Unknown]
  - Product dose omission issue [Unknown]
  - Contraindicated product administered [Unknown]
